FAERS Safety Report 6019379-2 (Version None)
Quarter: 2008Q4

REPORT INFORMATION
  Report Type: 
  Country: None (occurrence: None)
  Receive Date: 20081224
  Receipt Date: 20081217
  Transmission Date: 20090506
  Serious: Yes (Hospitalization, Other)
  Sender: FDA-Public Use
  Company Number: US-BIOGENIDEC-2008BI000016

PATIENT
  Sex: Male

DRUGS (1)
  1. TYSABRI [Suspect]
     Indication: MULTIPLE SCLEROSIS
     Route: 042
     Dates: start: 20071020, end: 20080103

REACTIONS (8)
  - CARDIAC ARREST [None]
  - DYSPNOEA [None]
  - INFUSION RELATED REACTION [None]
  - MULTIPLE SCLEROSIS [None]
  - PNEUMONIA [None]
  - PNEUMONIA ASPIRATION [None]
  - SEPSIS [None]
  - URINARY TRACT INFECTION [None]
